FAERS Safety Report 5196686-7 (Version None)
Quarter: 2007Q1

REPORT INFORMATION
  Report Type: 
  Country: None (occurrence: None)
  Receive Date: 20070103
  Receipt Date: 20061227
  Transmission Date: 20070707
  Serious: Yes (Hospitalization, Other)
  Sender: FDA-Public Use
  Company Number: US-AVENTIS-200618493US

PATIENT
  Sex: Female
  Weight: 79.99 kg

DRUGS (12)
  1. KETEK [Suspect]
     Indication: COUGH
     Route: 048
     Dates: start: 20060912, end: 20060917
  2. HERCEPTIN [Suspect]
     Indication: BREAST CANCER FEMALE
     Route: 042
     Dates: start: 20060531
  3. ADRIAMYCIN                         /00330901/ [Suspect]
     Indication: BREAST CANCER FEMALE
     Dosage: DOSE: UNK
     Dates: start: 20060401, end: 20060501
  4. ZOLOFT [Concomitant]
     Indication: DEPRESSION
     Route: 048
     Dates: start: 20040101
  5. ATIVAN [Concomitant]
     Indication: ANXIETY
     Route: 048
     Dates: start: 20060410
  6. ZANTAC [Concomitant]
     Indication: DYSPEPSIA
     Route: 048
     Dates: start: 20060701
  7. CLARINEX [Concomitant]
     Indication: LACRIMATION INCREASED
     Route: 048
     Dates: start: 20060815, end: 20060914
  8. CLARINEX [Concomitant]
     Indication: PARANASAL SINUS HYPERSECRETION
     Route: 048
     Dates: start: 20060815, end: 20060914
  9. LORCET                             /00607101/ [Concomitant]
     Dosage: DOSE: UNK
  10. ZYRTEC [Concomitant]
  11. COMPAZINE [Concomitant]
     Dosage: DOSE: UNK
  12. ALBUTEROL [Concomitant]
     Dosage: DOSE: II PUFFS

REACTIONS (10)
  - ARRHYTHMIA [None]
  - BRADYCARDIA [None]
  - CARDIAC ARREST [None]
  - DIZZINESS [None]
  - LOSS OF CONSCIOUSNESS [None]
  - PULSE ABSENT [None]
  - SINUS ARREST [None]
  - SYNCOPE VASOVAGAL [None]
  - TREMOR [None]
  - VOMITING [None]
